FAERS Safety Report 7536770-3 (Version None)
Quarter: 2011Q2

REPORT INFORMATION
  Report Type: 
  Country: None (occurrence: None)
  Receive Date: 20110609
  Receipt Date: 20110601
  Transmission Date: 20111010
  Serious: Yes (Other)
  Sender: FDA-Public Use
  Company Number: CA-ROCHE-750925

PATIENT
  Sex: Female
  Weight: 61.7 kg

DRUGS (2)
  1. BEVACIZUMAB [Suspect]
     Indication: COLORECTAL CANCER
     Route: 042
     Dates: start: 20100819
  2. LORAZEPAM [Concomitant]

REACTIONS (4)
  - ASCITES [None]
  - NEOPLASM MALIGNANT [None]
  - EPISTAXIS [None]
  - NASAL DISCOMFORT [None]
